FAERS Safety Report 4654991-4 (Version None)
Quarter: 2005Q2

REPORT INFORMATION
  Report Type: 
  Country: None (occurrence: None)
  Receive Date: 20050506
  Receipt Date: 20050428
  Transmission Date: 20051028
  Serious: Yes (Hospitalization, Other)
  Sender: FDA-Public Use
  Company Number: JP-MERCK-0505USA00124

PATIENT
  Age: 56 Year
  Sex: Female
  Weight: 49 kg

DRUGS (4)
  1. PRIMAXIN [Suspect]
     Indication: INFECTION
     Route: 042
     Dates: start: 20031101, end: 20031121
  2. GABEXATE MESYLATE [Concomitant]
     Indication: DISSEMINATED INTRAVASCULAR COAGULATION
     Route: 042
     Dates: start: 20031101
  3. INSULIN [Concomitant]
     Indication: DIABETIC KETOACIDOSIS
     Route: 042
     Dates: start: 20031101
  4. SODIUM CHLORIDE [Concomitant]
     Indication: DIABETIC KETOACIDOSIS
     Route: 042
     Dates: start: 20031101

REACTIONS (4)
  - ABSCESS [None]
  - DIABETIC RETINOPATHY [None]
  - DRUG INEFFECTIVE [None]
  - ENDOPHTHALMITIS [None]
